FAERS Safety Report 26104364 (Version 1)
Quarter: 2025Q4

REPORT INFORMATION
  Report Type: Report from Study
  Country: CA (occurrence: CA)
  Receive Date: 20251130
  Receipt Date: 20251130
  Transmission Date: 20260117
  Serious: Yes (Other)
  Sender: SANOFI AVENTIS
  Company Number: CA-SA-2025SA357051

PATIENT
  Age: 48 Year
  Sex: Female

DRUGS (6)
  1. DUPILUMAB [Suspect]
     Active Substance: DUPILUMAB
     Indication: Asthma
     Dosage: 600 MG, 1X
     Route: 058
     Dates: start: 20250213, end: 20250213
  2. DUPILUMAB [Suspect]
     Active Substance: DUPILUMAB
     Dosage: 300 MG, QOW
     Route: 058
     Dates: start: 2025
  3. Lyderm [Concomitant]
     Dosage: 1 DOSE EVERY 12 HOUR
     Dates: start: 2014
  4. PROTOPIC [Concomitant]
     Active Substance: TACROLIMUS
     Dosage: 1 DOSE EVERY 12 HOUR
     Dates: start: 2017
  5. HYDROCORTISONE VALERATE [Concomitant]
     Active Substance: HYDROCORTISONE VALERATE
     Dosage: UNK
     Dates: start: 2014
  6. CLOBETASOL [Concomitant]
     Active Substance: CLOBETASOL
     Dosage: 1 DOSE EVERY 12 HOUR
     Dates: start: 2017

REACTIONS (1)
  - Lower respiratory tract infection [Unknown]

NARRATIVE: CASE EVENT DATE: 20250301
